FAERS Safety Report 5198918-8 (Version None)
Quarter: 2006Q4

REPORT INFORMATION
  Report Type: 
  Country: None (occurrence: None)
  Receive Date: 20060925
  Receipt Date: 20060210
  Transmission Date: 20070319
  Serious: Yes (Other)
  Sender: FDA-Public Use
  Company Number: US-JNJFOC-20060202927

PATIENT
  Age: 32 Year
  Sex: Male

DRUGS (1)
  1. CONCERTA [Suspect]
     Indication: DRUG USE FOR UNKNOWN INDICATION
     Dosage: 54 MG, 1 IN 1 DAY, ORAL
     Route: 048

REACTIONS (2)
  - HALLUCINATION [None]
  - OVERDOSE [None]
